FAERS Safety Report 24861213 (Version 1)
Quarter: 2025Q1

REPORT INFORMATION
  Report Type: Spontaneous
  Country: US (occurrence: US)
  Receive Date: 20250120
  Receipt Date: 20250120
  Transmission Date: 20250409
  Serious: No
  Sender: Kenvue
  Company Number: US-KENVUE-20241207476

PATIENT
  Sex: Female
  Weight: 48.5 kg

DRUGS (21)
  1. TYLENOL [Suspect]
     Active Substance: ACETAMINOPHEN
     Indication: Infection
     Route: 065
     Dates: start: 2024
  2. DELSYM [Concomitant]
     Active Substance: DEXTROMETHORPHAN
     Indication: Infection
     Route: 065
     Dates: start: 2024
  3. TYVASO [Concomitant]
     Active Substance: TREPROSTINIL
     Indication: Pulmonary arterial hypertension
     Dosage: 72 MICROGRAM, FOUR TIME A DAY. CONCENTRATION OF 0.6 MG/ML
     Dates: start: 2024
  4. TYVASO [Concomitant]
     Active Substance: TREPROSTINIL
     Dates: start: 20240422
  5. ORENITRAM [Concomitant]
     Active Substance: TREPROSTINIL
     Indication: Pulmonary arterial hypertension
     Dosage: 0.25 MILLIGRAM, THRICE A DAY
     Route: 048
     Dates: start: 2024, end: 2024
  6. ORENITRAM [Concomitant]
     Active Substance: TREPROSTINIL
     Dosage: 0.375 MILLIGRAM, THRICE A DAY
     Route: 048
     Dates: start: 2024, end: 2024
  7. ORENITRAM [Concomitant]
     Active Substance: TREPROSTINIL
     Dosage: 0.5 MILLIGRAM, THRICE A DAY
     Route: 048
     Dates: start: 2024, end: 2024
  8. ORENITRAM [Concomitant]
     Active Substance: TREPROSTINIL
     Dosage: 1 MILLIGRAM, THRICE A DAY
     Route: 048
     Dates: start: 2024
  9. ORENITRAM [Concomitant]
     Active Substance: TREPROSTINIL
     Route: 048
     Dates: start: 20241031
  10. MIRALAX [Concomitant]
     Active Substance: POLYETHYLENE GLYCOL 3350
     Indication: Constipation
     Route: 065
     Dates: start: 2024
  11. AMLODIPINE BESYLATE [Concomitant]
     Active Substance: AMLODIPINE BESYLATE
     Indication: Product used for unknown indication
     Route: 065
  12. RAMIPRIL [Concomitant]
     Active Substance: RAMIPRIL
     Indication: Product used for unknown indication
     Route: 065
  13. LASIX [Concomitant]
     Active Substance: FUROSEMIDE
     Indication: Product used for unknown indication
     Route: 065
  14. PIRFENIDONE [Concomitant]
     Active Substance: PIRFENIDONE
     Indication: Product used for unknown indication
     Route: 065
  15. SILDENAFIL CITRATE [Concomitant]
     Active Substance: SILDENAFIL CITRATE
     Indication: Product used for unknown indication
     Route: 065
  16. CLOPIDOGREL [Concomitant]
     Active Substance: CLOPIDOGREL BISULFATE
     Indication: Product used for unknown indication
     Route: 065
  17. VITAMIN D2 [Concomitant]
     Active Substance: ERGOCALCIFEROL
     Indication: Product used for unknown indication
     Route: 065
  18. METOPROLOL SUCCINATE [Concomitant]
     Active Substance: METOPROLOL SUCCINATE
     Indication: Product used for unknown indication
     Route: 065
  19. LEVOTHYROXINE SODIUM [Concomitant]
     Active Substance: LEVOTHYROXINE SODIUM
     Indication: Product used for unknown indication
     Route: 065
  20. OXYGEN [Concomitant]
     Active Substance: OXYGEN
     Indication: Product used for unknown indication
     Route: 065
  21. ATORVASTATIN CALCIUM [Concomitant]
     Active Substance: ATORVASTATIN CALCIUM
     Indication: Product used for unknown indication
     Route: 065

REACTIONS (2)
  - Product use in unapproved indication [Unknown]
  - Therapeutic response unexpected [Unknown]

NARRATIVE: CASE EVENT DATE: 20240101
